FAERS Safety Report 6648506-9 (Version None)
Quarter: 2010Q1

REPORT INFORMATION
  Report Type: 
  Country: None (occurrence: None)
  Receive Date: 20100319
  Receipt Date: 20100303
  Transmission Date: 20100710
  Serious: Yes (Hospitalization)
  Sender: FDA-Public Use
  Company Number: 10-024-2

PATIENT
  Age: 59 Year
  Sex: Female

DRUGS (5)
  1. CEFTRIAXONE FOR INJECTION USP 1 G [Suspect]
     Indication: OSTEOMYELITIS
     Dosage: 2G PER DAY, IV
     Route: 042
  2. VANCOMYCIN  INJ  1G [Suspect]
     Dosage: 1G EVERY 12 H  IV
     Route: 042
  3. GLYBURIDE [Concomitant]
  4. PIOGLITAZONE [Concomitant]
  5. ISOPHANE INSULIN [Concomitant]

REACTIONS (7)
  - ANTIBIOTIC LEVEL ABOVE THERAPEUTIC [None]
  - BLOOD CULTURE POSITIVE [None]
  - ENTEROBACTER INFECTION [None]
  - ENTEROCOCCAL INFECTION [None]
  - EOSINOPHIL COUNT INCREASED [None]
  - RENAL FAILURE ACUTE [None]
  - TUBULOINTERSTITIAL NEPHRITIS [None]
